FAERS Safety Report 5399949-5 (Version None)
Quarter: 2007Q3

REPORT INFORMATION
  Report Type: 
  Country: None (occurrence: None)
  Receive Date: 20070730
  Receipt Date: 20070720
  Transmission Date: 20080115
  Serious: Yes (Hospitalization)
  Sender: FDA-Public Use
  Company Number: US-JNJFOC-20070705262

PATIENT
  Sex: Male
  Weight: 95.26 kg

DRUGS (5)
  1. DURAGESIC-100 [Suspect]
     Indication: PAIN
     Dosage: 50 UG/HR AND 25 UG/HR
     Route: 062
  2. OXYCODONE HCL [Concomitant]
     Route: 048
  3. OXYCODONE HCL [Concomitant]
     Indication: BREAKTHROUGH PAIN
     Route: 048
  4. VALIUM [Concomitant]
     Indication: MUSCLE SPASMS
     Route: 048
  5. COUMADIN [Concomitant]
     Indication: ANTICOAGULANT THERAPY
     Route: 048

REACTIONS (7)
  - DEPRESSION [None]
  - DYSPNOEA [None]
  - RHINORRHOEA [None]
  - SNEEZING [None]
  - SUICIDAL IDEATION [None]
  - UNEVALUABLE EVENT [None]
  - WRONG TECHNIQUE IN DRUG USAGE PROCESS [None]
